FAERS Safety Report 6212143-0 (Version None)
Quarter: 2009Q2

REPORT INFORMATION
  Report Type: 
  Country: None (occurrence: None)
  Receive Date: 20090602
  Receipt Date: 20090526
  Transmission Date: 20091009
  Serious: Yes (Other)
  Sender: FDA-Public Use
  Company Number: PHEH2009US03309

PATIENT
  Sex: Female

DRUGS (4)
  1. FOCALIN XR [Suspect]
     Indication: ATTENTION DEFICIT/HYPERACTIVITY DISORDER
     Dosage: 5 MG, QD
     Route: 048
     Dates: start: 20080401, end: 20080501
  2. FOCALIN XR [Suspect]
     Dosage: 10 MG, QD
     Route: 048
     Dates: start: 20080501, end: 20080601
  3. FOCALIN XR [Suspect]
     Dosage: 10 MG, QD
     Dates: start: 20081029, end: 20090123
  4. FOCALIN XR [Suspect]
     Dosage: 15 MG, QD
     Route: 048
     Dates: start: 20090123, end: 20090220

REACTIONS (4)
  - CONVULSION [None]
  - MUSCLE TWITCHING [None]
  - PETIT MAL EPILEPSY [None]
  - STARING [None]
